FAERS Safety Report 12010837 (Version 2)
Quarter: 2016Q1

REPORT INFORMATION
  Report Type: Spontaneous
  Country: FR (occurrence: FR)
  Receive Date: 20160205
  Receipt Date: 20160210
  Transmission Date: 20160526
  Serious: Yes (Life-Threatening, Hospitalization)
  Sender: FDA-Public Use
  Company Number: PHHY2016FR015595

PATIENT
  Age: 18 Year
  Sex: Male

DRUGS (11)
  1. LOXAPAC [Suspect]
     Active Substance: LOXAPINE SUCCINATE
     Dosage: SUPPOSED INGESTED QUANTITY: 5 TABLETS IN A SINGLE DOSE
     Route: 048
     Dates: start: 20160105, end: 20160105
  2. XEROQUEL [Suspect]
     Active Substance: QUETIAPINE FUMARATE
     Dosage: SUPPOSED INGESTED QUANTITY: 4 TABLETS IN A SINGLE DOSE
     Route: 048
     Dates: start: 20160105, end: 20160105
  3. PROZAC [Concomitant]
     Active Substance: FLUOXETINE HYDROCHLORIDE
     Indication: PRODUCT USED FOR UNKNOWN INDICATION
     Dosage: 40 MG, QD
     Route: 048
  4. PAROXETINE [Suspect]
     Active Substance: PAROXETINE\PAROXETINE HYDROCHLORIDE
     Indication: PRODUCT USED FOR UNKNOWN INDICATION
     Dosage: SUPPOSED INGESTED QUANTITY: 10 TABLETS IN A SINGLE DOSE
     Route: 048
     Dates: start: 20160105, end: 20160105
  5. AVLOCARDYL [Suspect]
     Active Substance: PROPRANOLOL HYDROCHLORIDE
     Dosage: SUPPOSED INGESTED QUANTITY: 7.5 TABLETS (40 MG) IN A SINGLE DOSE
     Route: 048
     Dates: start: 20160105, end: 20160105
  6. LOXAPAC [Suspect]
     Active Substance: LOXAPINE SUCCINATE
     Indication: PRODUCT USED FOR UNKNOWN INDICATION
     Dosage: 25 MG, QD
     Route: 048
  7. XEROQUEL [Suspect]
     Active Substance: QUETIAPINE FUMARATE
     Indication: AGITATION
     Dosage: 50 MG, UNK
     Route: 048
  8. TEGRETOL LP [Suspect]
     Active Substance: CARBAMAZEPINE
     Dosage: 15 TABLETS (400 MG) IN A SINGLE DOSE
     Route: 048
     Dates: start: 20160105, end: 20160105
  9. AVLOCARDYL [Suspect]
     Active Substance: PROPRANOLOL HYDROCHLORIDE
     Indication: PRODUCT USED FOR UNKNOWN INDICATION
     Dosage: 20 MG, TID
     Route: 048
  10. MICARDIS [Suspect]
     Active Substance: TELMISARTAN
     Indication: PRODUCT USED FOR UNKNOWN INDICATION
     Dosage: SUPPOSED INGESTED QUANTITY: 80 MG IN A SINGLE DOSE (TREATMENT OF HIS MOTHER)
     Route: 048
     Dates: start: 20160105, end: 20160105
  11. TEGRETOL LP [Suspect]
     Active Substance: CARBAMAZEPINE
     Indication: PRODUCT USED FOR UNKNOWN INDICATION
     Dosage: 400 MG, BID
     Route: 048

REACTIONS (3)
  - Cardiogenic shock [Recovered/Resolved]
  - Bradycardia [Recovered/Resolved]
  - Hypotension [Recovered/Resolved]

NARRATIVE: CASE EVENT DATE: 20160105
